FAERS Safety Report 21770237 (Version 1)
Quarter: 2022Q4

REPORT INFORMATION
  Report Type: Spontaneous
  Country: DE (occurrence: DE)
  Receive Date: 20221223
  Receipt Date: 20221223
  Transmission Date: 20230113
  Serious: Yes (Hospitalization)
  Sender: FDA-Public Use
  Company Number: DE-JNJFOC-20221233659

PATIENT
  Age: 24 Year
  Sex: Male

DRUGS (3)
  1. STELARA [Suspect]
     Active Substance: USTEKINUMAB
     Indication: Crohn^s disease
     Route: 058
     Dates: start: 20221031
  2. STELARA [Suspect]
     Active Substance: USTEKINUMAB
  3. METAMIZOLE [Concomitant]
     Active Substance: METAMIZOLE
     Dates: start: 20220314

REACTIONS (4)
  - Large intestine perforation [Recovered/Resolved]
  - Colonic abscess [Recovered/Resolved]
  - Crohn^s disease [Recovered/Resolved]
  - Treatment failure [Unknown]

NARRATIVE: CASE EVENT DATE: 20221117
